FAERS Safety Report 16162720 (Version 1)
Quarter: 2019Q2

REPORT INFORMATION
  Report Type: Spontaneous
  Country: US (occurrence: US)
  Receive Date: 20190303
  Receipt Date: 20190303
  Transmission Date: 20190711
  Serious: No
  Sender: FDA-Public Use
  Company Number: None

PATIENT
  Age: 24 Year
  Sex: Female

DRUGS (1)
  1. TRIENTINE HCL 250MG CAP [Suspect]
     Active Substance: TRIENTINE HYDROCHLORIDE
     Dates: start: 20190228

REACTIONS (1)
  - Flushing [None]

NARRATIVE: CASE EVENT DATE: 20190303
